FAERS Safety Report 8616411-4 (Version None)
Quarter: 2012Q3

REPORT INFORMATION
  Report Type: 
  Country: None (occurrence: None)
  Receive Date: 20120823
  Receipt Date: 20120816
  Transmission Date: 20120928
  Serious: Yes (Hospitalization)
  Sender: FDA-Public Use
  Company Number: DE-BMSGILMSD-2012-0059986

PATIENT
  Age: 44 Year
  Sex: Male

DRUGS (1)
  1. ATRIPLA [Suspect]
     Indication: HIV INFECTION
     Route: 048

REACTIONS (3)
  - TRANSIENT PSYCHOSIS [None]
  - FRACTURE [None]
  - ROAD TRAFFIC ACCIDENT [None]
